FAERS Safety Report 4511770-6 (Version None)
Quarter: 2004Q4

REPORT INFORMATION
  Report Type: 
  Country: None (occurrence: None)
  Receive Date: 20041123
  Receipt Date: 20041123
  Transmission Date: 20050328
  Serious: Yes (Other)
  Sender: FDA-Public Use
  Company Number: None

PATIENT
  Age: 79 Year
  Sex: Male
  Weight: 93 kg

DRUGS (14)
  1. MORPHINE [Suspect]
  2. METFORMIN HCL [Concomitant]
  3. INSULIN NOVOLIN 70/30 (NPH/REG) INJ NOVO [Concomitant]
  4. ATENOLOL [Concomitant]
  5. LANOXIN [Concomitant]
  6. FOSINOPRIL SODIUM [Concomitant]
  7. SYNTHROID [Concomitant]
  8. KETOCONAZOLE [Concomitant]
  9. ACCU-CHEK COMFORT CURVE-H TEST STRIP [Concomitant]
  10. FUROSEMIDE [Concomitant]
  11. KETOCONAZOLE [Concomitant]
  12. AMOXICILLIN [Concomitant]
  13. CLARITHROMYCIN [Concomitant]
  14. OMEPRAZOLE [Concomitant]

REACTIONS (2)
  - DYSKINESIA [None]
  - TREMOR [None]
